FAERS Safety Report 4338188-3 (Version None)
Quarter: 2004Q2

REPORT INFORMATION
  Report Type: 
  Country: None (occurrence: None)
  Receive Date: 20040413
  Receipt Date: 20040413
  Transmission Date: 20050107
  Serious: Yes (Other)
  Sender: FDA-Public Use
  Company Number: None

PATIENT
  Age: 19 Year
  Sex: Female
  Weight: 52.1637 kg

DRUGS (1)
  1. ZOLOFT [Suspect]
     Indication: DEPRESSION
     Dosage: 250 MG ONCE A DAY ORAL
     Route: 048
     Dates: start: 19990501, end: 20040402

REACTIONS (6)
  - DISTURBANCE IN ATTENTION [None]
  - DRUG WITHDRAWAL SYNDROME [None]
  - MALAISE [None]
  - PAIN [None]
  - SUICIDAL IDEATION [None]
  - SYNCOPE [None]
